FAERS Safety Report 9319508 (Version 1)
Quarter: 2013Q2

REPORT INFORMATION
  Report Type: Spontaneous
  Country: FR (occurrence: FR)
  Receive Date: 20130530
  Receipt Date: 20130530
  Transmission Date: 20140414
  Serious: Yes (Life-Threatening, Other)
  Sender: FDA-Public Use
  Company Number: FR-009507513-1305FRA012193

PATIENT
  Age: 33 Year
  Sex: Female

DRUGS (5)
  1. IMPLANON [Suspect]
     Indication: CONTRACEPTION
     Dosage: UNK
     Route: 023
     Dates: end: 20120523
  2. ZYPREXA [Suspect]
     Dosage: 10 MG, QD
     Route: 048
  3. BROMAZEPAN [Concomitant]
     Route: 048
  4. ZOPICLONE [Concomitant]
     Dosage: 7.5 MG, QD
     Route: 048
  5. CETIRIZINE HYDROCHLORIDE [Concomitant]
     Dosage: 10 MG, QD
     Route: 048

REACTIONS (1)
  - Pulmonary embolism [Recovered/Resolved]
